FAERS Safety Report 6229289-3 (Version None)
Quarter: 2009Q2

REPORT INFORMATION
  Report Type: 
  Country: None (occurrence: None)
  Receive Date: 20090615
  Receipt Date: 20090609
  Transmission Date: 20091009
  Serious: Yes (Other)
  Sender: FDA-Public Use
  Company Number: US-BAYER-200911769BCC

PATIENT
  Age: 79 Year
  Sex: Female
  Weight: 54 kg

DRUGS (6)
  1. BAYER ASPIRIN W/HEART ADVANTAGE [Suspect]
     Indication: HEADACHE
     Route: 048
     Dates: start: 20090501
  2. CITRACAL [Suspect]
     Indication: VITAMIN SUPPLEMENTATION
     Route: 065
     Dates: start: 20090604
  3. PROAIR HFA [Concomitant]
     Indication: UNEVALUABLE EVENT
  4. LEVOTHYROXINE [Concomitant]
     Indication: UNEVALUABLE EVENT
  5. DILTIAZEM [Concomitant]
     Indication: UNEVALUABLE EVENT
  6. LOVASTATIN [Concomitant]
     Indication: UNEVALUABLE EVENT

REACTIONS (2)
  - CONTUSION [None]
  - FOREIGN BODY TRAUMA [None]
